FAERS Safety Report 9733932 (Version 1)
Quarter: 2013Q4

REPORT INFORMATION
  Report Type: Spontaneous
  Country: US (occurrence: US)
  Receive Date: 20131205
  Receipt Date: 20131205
  Transmission Date: 20140711
  Serious: Yes (Hospitalization)
  Sender: FDA-Public Use
  Company Number: US-PFIZER INC-2013347840

PATIENT
  Sex: 0

DRUGS (2)
  1. ELIQUIS [Suspect]
  2. HEPARIN SODIUM [Suspect]
     Route: 041

REACTIONS (2)
  - Adverse event [Unknown]
  - Activated partial thromboplastin time prolonged [Unknown]
